FAERS Safety Report 24230057 (Version 2)
Quarter: 2024Q4

REPORT INFORMATION
  Report Type: Report from Study
  Country: GB (occurrence: GB)
  Receive Date: 20240820
  Receipt Date: 20241127
  Transmission Date: 20250114
  Serious: No
  Sender: SANDOZ
  Company Number: GB-002147023-NVSC2020GB083498

PATIENT
  Age: 60 Year
  Sex: Male

DRUGS (3)
  1. ERELZI [Suspect]
     Active Substance: ETANERCEPT-SZZS
     Indication: Prostatic specific antigen
     Dosage: 50 MG, QW
     Route: 058
     Dates: start: 20200316
  2. ERELZI [Suspect]
     Active Substance: ETANERCEPT-SZZS
     Indication: Psoriatic arthropathy
     Dosage: UNK
     Route: 065
     Dates: start: 202003
  3. ERELZI [Suspect]
     Active Substance: ETANERCEPT-SZZS
     Indication: Rheumatoid arthritis

REACTIONS (14)
  - Skin swelling [Unknown]
  - Swelling [Unknown]
  - Discomfort [Unknown]
  - Lethargy [Unknown]
  - Arthralgia [Recovered/Resolved]
  - Joint stiffness [Not Recovered/Not Resolved]
  - Injection site paraesthesia [Unknown]
  - Hernia [Unknown]
  - Abdominal distension [Unknown]
  - Injection site bruising [Not Recovered/Not Resolved]
  - Injection site haemorrhage [Not Recovered/Not Resolved]
  - Injection site pain [Unknown]
  - Device difficult to use [Unknown]
  - Product availability issue [Unknown]

NARRATIVE: CASE EVENT DATE: 20200317
